FAERS Safety Report 17518497 (Version 1)
Quarter: 2020Q1

REPORT INFORMATION
  Report Type: Spontaneous
  Country: US (occurrence: US)
  Receive Date: 20200228
  Receipt Date: 20200228
  Transmission Date: 20200409
  Serious: No
  Sender: FDA-Public Use
  Company Number: None

PATIENT
  Age: 71 Year
  Sex: Male

DRUGS (1)
  1. CISPLATIN MDV 50MG/50ML [Suspect]
     Active Substance: CISPLATIN
     Dosage: OTHER
     Route: 041
     Dates: start: 20200201

REACTIONS (1)
  - Renal impairment [None]

NARRATIVE: CASE EVENT DATE: 20200228
